FAERS Safety Report 9341933 (Version 1)
Quarter: 2013Q2

REPORT INFORMATION
  Report Type: Spontaneous
  Country: TR (occurrence: TR)
  Receive Date: 20130611
  Receipt Date: 20130611
  Transmission Date: 20140414
  Serious: Yes (Other)
  Sender: FDA-Public Use
  Company Number: TR-MYLANLABS-2013S1011881

PATIENT
  Age: 59 Year
  Sex: Female

DRUGS (2)
  1. QUETIAPINE [Suspect]
     Indication: PSYCHOTIC DISORDER
     Dosage: 100 MG/DAY
     Route: 065
  2. MEMANTINE [Concomitant]
     Indication: DEMENTIA
     Dosage: 10 MG/DAY
     Route: 065

REACTIONS (1)
  - Floppy iris syndrome [Recovering/Resolving]
